FAERS Safety Report 24314218 (Version 4)
Quarter: 2025Q1

REPORT INFORMATION
  Report Type: Spontaneous
  Country: FR (occurrence: FR)
  Receive Date: 20240912
  Receipt Date: 20250325
  Transmission Date: 20250409
  Serious: Yes (Hospitalization, Other)
  Sender: BRISTOL-MYERS SQUIBB COMPANY
  Company Number: FR-ROCHE-10000068635

PATIENT
  Age: 68 Year
  Sex: Female
  Weight: 48 kg

DRUGS (6)
  1. PACLITAXEL [Suspect]
     Active Substance: PACLITAXEL
     Indication: Triple negative breast cancer
     Dosage: CUMULATIVE DOSE: 512 MG?LAST DOSE PRIOR TO AE: 118 MG
     Route: 042
     Dates: start: 20240806, end: 20241028
  2. PACLITAXEL [Suspect]
     Active Substance: PACLITAXEL
     Route: 042
  3. TIRAGOLUMAB [Suspect]
     Active Substance: TIRAGOLUMAB
     Indication: Triple negative breast cancer
     Dosage: CUMULATIVE DOSE: 4800 MG
     Route: 042
     Dates: start: 20240806, end: 20250106
  4. ATEZOLIZUMAB [Suspect]
     Active Substance: ATEZOLIZUMAB
     Indication: Triple negative breast cancer
     Dosage: CUMULATIVE DOSE: 9600 MG
     Route: 042
     Dates: start: 20240806, end: 20250106
  5. CARBOPLATIN [Suspect]
     Active Substance: CARBOPLATIN
     Indication: Triple negative breast cancer
     Dosage: LAST DOSE PRIOR AE: 381 MG?CUMULATIVE DOSE: 1664 MG
     Route: 042
     Dates: start: 20240806, end: 20241019
  6. CARBOPLATIN [Suspect]
     Active Substance: CARBOPLATIN
     Route: 042

REACTIONS (5)
  - Vascular device infection [Recovered/Resolved]
  - Troponin increased [Recovered/Resolved]
  - Staphylococcal infection [Recovered/Resolved]
  - Prescribed underdose [Unknown]
  - Dry eye [Unknown]

NARRATIVE: CASE EVENT DATE: 20240826
